FAERS Safety Report 7038944-7 (Version None)
Quarter: 2010Q4

REPORT INFORMATION
  Report Type: 
  Country: None (occurrence: None)
  Receive Date: 20101012
  Receipt Date: 20101005
  Transmission Date: 20110411
  Serious: No
  Sender: FDA-Public Use
  Company Number: US-CELGENEUS-163-20785-10091166

PATIENT
  Sex: Male

DRUGS (4)
  1. THALOMID [Suspect]
     Indication: MULTIPLE MYELOMA
     Route: 048
     Dates: start: 20100701
  2. THALOMID [Suspect]
     Route: 048
     Dates: start: 20100903, end: 20100909
  3. COUMADIN [Concomitant]
     Indication: PRODUCT USED FOR UNKNOWN INDICATION
     Route: 048
  4. DECADRON [Concomitant]
     Indication: PRODUCT USED FOR UNKNOWN INDICATION
     Route: 048

REACTIONS (6)
  - DYSURIA [None]
  - FATIGUE [None]
  - MALAISE [None]
  - MUSCULOSKELETAL STIFFNESS [None]
  - NEURALGIA [None]
  - NEUROPATHY PERIPHERAL [None]
